FAERS Safety Report 20344120 (Version 1)
Quarter: 2022Q1

REPORT INFORMATION
  Report Type: Report from Study
  Country: AR (occurrence: AR)
  Receive Date: 20220118
  Receipt Date: 20220118
  Transmission Date: 20220424
  Serious: Yes (Death, Other)
  Sender: FDA-Public Use
  Company Number: AR-SA-SAC20220117000029

PATIENT
  Age: 69 Year
  Sex: Male

DRUGS (2)
  1. SEVELAMER CARBONATE [Suspect]
     Active Substance: SEVELAMER CARBONATE
     Indication: Hyperphosphataemia
     Dosage: 7.2 G, QD
     Route: 048
     Dates: start: 20210924, end: 20220111
  2. SEVELAMER CARBONATE [Suspect]
     Active Substance: SEVELAMER CARBONATE
     Indication: Chronic kidney disease

REACTIONS (2)
  - Death [Fatal]
  - Suspected COVID-19 [Unknown]

NARRATIVE: CASE EVENT DATE: 20220111
